FAERS Safety Report 6139769-7 (Version None)
Quarter: 2009Q2

REPORT INFORMATION
  Report Type: 
  Country: None (occurrence: None)
  Receive Date: 20090401
  Receipt Date: 20090324
  Transmission Date: 20091009
  Serious: Yes (Death)
  Sender: FDA-Public Use
  Company Number: A0766356A

PATIENT
  Age: 51 Year
  Sex: Female

DRUGS (8)
  1. FLONASE [Suspect]
     Dosage: 2SPR PER DAY
     Route: 045
     Dates: start: 20031103
  2. VENTOLIN [Suspect]
     Indication: CHRONIC OBSTRUCTIVE PULMONARY DISEASE
     Dosage: 2SPR FOUR TIMES PER DAY
     Route: 055
     Dates: start: 20031103
  3. LASIX [Concomitant]
     Dosage: 40MG PER DAY
  4. POTASSIUM CHLORIDE [Concomitant]
     Dosage: 10MG TWICE PER DAY
  5. LEXAPRO [Concomitant]
     Dosage: 10MG PER DAY
  6. TIAZAC [Concomitant]
     Dosage: 240MG PER DAY
  7. AZMACORT [Concomitant]
     Dosage: 4PUFF TWICE PER DAY
  8. OXYGEN [Concomitant]

REACTIONS (1)
  - DEATH [None]
